FAERS Safety Report 23860679 (Version 1)
Quarter: 2024Q2

REPORT INFORMATION
  Report Type: Report from Study
  Country: MX (occurrence: MX)
  Receive Date: 20240516
  Receipt Date: 20240516
  Transmission Date: 20240716
  Serious: Yes (Hospitalization)
  Sender: FDA-Public Use
  Company Number: MX-002147023-NVSC2024MX047860

PATIENT
  Age: 71 Year
  Sex: Male
  Weight: 90 kg

DRUGS (17)
  1. TASIGNA [Suspect]
     Active Substance: NILOTINIB
     Indication: Chronic myeloid leukaemia
     Dosage: UNK
     Route: 048
  2. TASIGNA [Suspect]
     Active Substance: NILOTINIB
     Dosage: 4 DOSAGE FORM
     Route: 048
  3. TASIGNA [Suspect]
     Active Substance: NILOTINIB
     Dosage: 2 DOSAGE FORM,ONE IN THE MORNING AND ONE IN THE AFTERNOON
     Route: 048
  4. TASIGNA [Suspect]
     Active Substance: NILOTINIB
     Dosage: 2(200 MG,EVERY 12 HOURS)
     Route: 048
     Dates: start: 202401, end: 202402
  5. TASIGNA [Suspect]
     Active Substance: NILOTINIB
     Dosage: 1(200 MG,EVERY 12 HOURS)
     Route: 048
     Dates: start: 202402, end: 20240229
  6. TASIGNA [Suspect]
     Active Substance: NILOTINIB
     Dosage: 800 MG DAILY/ 2 OF 200 MG IN THE MORNING AND 2 OF 200 MG IN THE AFTERNOON
     Route: 048
     Dates: start: 202401
  7. TASIGNA [Suspect]
     Active Substance: NILOTINIB
     Dosage: 400 MG DAILY/ 1 OF 200 MG IN THE MORNING AND 1 OF 200 MG IN THE AFTERNOON
     Route: 048
     Dates: end: 20240301
  8. IMATINIB [Suspect]
     Active Substance: IMATINIB
     Indication: Product used for unknown indication
     Dosage: UNK
     Route: 065
  9. IMATINIB [Suspect]
     Active Substance: IMATINIB
     Dosage: 4 DOSAGE FORM
     Route: 048
  10. IMATINIB [Suspect]
     Active Substance: IMATINIB
     Dosage: 4(100 MG, QD)
     Route: 048
     Dates: start: 2017, end: 202401
  11. IMATINIB [Suspect]
     Active Substance: IMATINIB
     Dosage: 2(100 MG,EVERY 12 HOURS)
     Route: 048
     Dates: start: 20240303
  12. IMATINIB [Suspect]
     Active Substance: IMATINIB
     Dosage: 100 MG, Q12H
     Route: 065
  13. INSULIN GLARGINE [Concomitant]
     Active Substance: INSULIN GLARGINE
     Indication: Diabetes mellitus
     Dosage: 30 IU, QD
     Route: 058
  14. ALPRAZOLAM [Concomitant]
     Active Substance: ALPRAZOLAM
     Indication: Anxiety
     Dosage: HALF, QD
     Route: 048
  15. SERTRALINE [Concomitant]
     Active Substance: SERTRALINE HYDROCHLORIDE
     Indication: Anxiety
     Dosage: 1 DOSAGE FORM,AT NIGHT
     Route: 048
     Dates: start: 20220711
  16. LOSARTAN [Concomitant]
     Active Substance: LOSARTAN
     Indication: Hypertension
     Dosage: 50 MG, EVERY 12 HOURS
     Route: 048
  17. ATORVASTATIN [Concomitant]
     Active Substance: ATORVASTATIN
     Indication: Product used for unknown indication
     Dosage: 20 MG,EVERY 24 HOURS
     Route: 048
     Dates: start: 202310

REACTIONS (16)
  - Cardiovascular disorder [Unknown]
  - Inflammation [Unknown]
  - Skin discolouration [Unknown]
  - Drug intolerance [Unknown]
  - Malaise [Unknown]
  - Nausea [Recovered/Resolved]
  - Diarrhoea [Recovered/Resolved]
  - Insomnia [Unknown]
  - Weight decreased [Recovered/Resolved]
  - Food intolerance [Unknown]
  - Vomiting [Recovered/Resolved]
  - Blood glucose increased [Recovered/Resolved]
  - Headache [Recovered/Resolved]
  - Pain [Recovered/Resolved]
  - Tremor [Unknown]
  - Decreased appetite [Unknown]

NARRATIVE: CASE EVENT DATE: 20240101
